FAERS Safety Report 21959915 (Version 1)
Quarter: 2023Q1

REPORT INFORMATION
  Report Type: Spontaneous
  Country: TW (occurrence: TW)
  Receive Date: 20230206
  Receipt Date: 20230206
  Transmission Date: 20230418
  Serious: Yes (Death)
  Sender: FDA-Public Use
  Company Number: TW-STRIDES ARCOLAB LIMITED-2023SP001677

PATIENT
  Age: 17 Year
  Sex: Female

DRUGS (30)
  1. DEXAMETHASONE [Suspect]
     Active Substance: DEXAMETHASONE
     Indication: Epstein-Barr virus infection
     Dosage: 10 MILLIGRAM/SQ. METER (REGIMEN AA; ON DAY 1-5)
     Route: 048
  2. DEXAMETHASONE [Suspect]
     Active Substance: DEXAMETHASONE
     Indication: Haemophagocytic lymphohistiocytosis
     Dosage: 10 MILLIGRAM/SQ. METER (REGIMEN BB; ON DAY 1-5)
     Route: 048
  3. DEXAMETHASONE [Suspect]
     Active Substance: DEXAMETHASONE
     Dosage: 10 MILLIGRAM/SQ. METER (REGIMEN CC; ON DAY 1-5)
     Route: 048
  4. METHOTREXATE [Suspect]
     Active Substance: METHOTREXATE
     Indication: Epstein-Barr virus infection
     Dosage: 5 GRAM PER SQUARE METRE, (INFUSION) (REGIMEN AA; FOR 24H ON DAY 1 DOSE: 5 G/M2)
     Route: 065
  5. METHOTREXATE [Suspect]
     Active Substance: METHOTREXATE
     Indication: Haemophagocytic lymphohistiocytosis
     Dosage: 12 MILLIGRAM (REGIMEN AA; TRIPLE INTRATHECAL THERAPY, ON DAY 1)
     Route: 037
  6. METHOTREXATE [Suspect]
     Active Substance: METHOTREXATE
     Dosage: 5 GRAM PER SQUARE METRE,  (INFUSION) (REGIMEN BB; FOR 24H ON DAY 1 DOSE: 5 G/M2)
     Route: 065
  7. METHOTREXATE [Suspect]
     Active Substance: METHOTREXATE
     Dosage: 12 MILLIGRAM (REGIMEN BB; TRIPLE INTRATHECAL THERAPY, ON DAY 1)
     Route: 037
  8. METHOTREXATE [Suspect]
     Active Substance: METHOTREXATE
     Dosage: 12 MILLIGRAM (REGIMEN CC; TRIPLE INTRATHECAL THERAPY, ON DAY 5)
     Route: 037
  9. EPIRUBICIN [Suspect]
     Active Substance: EPIRUBICIN
     Indication: Epstein-Barr virus infection
     Dosage: 25 MILLIGRAM/SQ. METER (REGIMEN BB; ON DAY 4 AND 5)
     Route: 042
  10. EPIRUBICIN [Suspect]
     Active Substance: EPIRUBICIN
     Indication: Haemophagocytic lymphohistiocytosis
  11. ETOPOSIDE [Suspect]
     Active Substance: ETOPOSIDE
     Indication: Epstein-Barr virus infection
     Dosage: UNK
     Route: 065
  12. ETOPOSIDE [Suspect]
     Active Substance: ETOPOSIDE
     Indication: Haemophagocytic lymphohistiocytosis
     Dosage: 100 MILLIGRAM/SQ. METER (HAEMOPHAGOCYTIC LYMPHOHISTIOCYTOSIS) FOR 2 HRS
     Route: 042
  13. ETOPOSIDE [Suspect]
     Active Substance: ETOPOSIDE
     Dosage: 150 MILLIGRAM/SQ. METER (REGIMEN CC; FOR 2H ON DAY 3, 4 ND 5)
     Route: 042
  14. IFOSFAMIDE [Suspect]
     Active Substance: IFOSFAMIDE
     Indication: Epstein-Barr virus infection
     Dosage: 800 MILLIGRAM/SQ. METER (REGIMEN AA; FOR 1H ON DAYS 1-5)
     Route: 042
  15. IFOSFAMIDE [Suspect]
     Active Substance: IFOSFAMIDE
     Indication: Haemophagocytic lymphohistiocytosis
  16. HYDROCORTISONE [Suspect]
     Active Substance: HYDROCORTISONE
     Indication: Epstein-Barr virus infection
     Dosage: 12 MILLIGRAM (REGIMEN AA; TRIPLE INTRATHECAL THERAPY, ON DAY 1)
     Route: 037
  17. HYDROCORTISONE [Suspect]
     Active Substance: HYDROCORTISONE
     Indication: Haemophagocytic lymphohistiocytosis
     Dosage: 12 MILLIGRAM (REGIMEN BB; TRIPLE INTRATHECAL THERAPY, ON DAY 1)
     Route: 037
  18. HYDROCORTISONE [Suspect]
     Active Substance: HYDROCORTISONE
     Dosage: 12 MILLIGRAM (REGIMEN CC; TRIPLE INTRATHECAL THERAPY, ON DAY 5)
     Route: 037
  19. CYTARABINE [Suspect]
     Active Substance: CYTARABINE
     Indication: Epstein-Barr virus infection
     Dosage: 24 MILLIGRAM (REGIMEN AA; TRIPLE INTRATHECAL THERAPY, ON DAY 1)
     Route: 037
  20. CYTARABINE [Suspect]
     Active Substance: CYTARABINE
     Indication: Haemophagocytic lymphohistiocytosis
     Dosage: 150 MILLIGRAM/SQ. METER (REGIMEN AA; FOR 1H ON DAY 4 ND 5)
     Route: 042
  21. CYTARABINE [Suspect]
     Active Substance: CYTARABINE
     Dosage: 24 MILLIGRAM (REGIMEN BB; TRIPLE INTRATHECAL THERAPY, ON DAY 1  )
     Route: 037
  22. CYTARABINE [Suspect]
     Active Substance: CYTARABINE
     Dosage: 2000 MILLIGRAM/SQ. METER (REGIMEN CC; FOR 3H ON DAY 1 ND 2)
     Route: 042
  23. CYTARABINE [Suspect]
     Active Substance: CYTARABINE
     Dosage: 24 MILLIGRAM (REGIMEN CC; TRIPLE INTRATHECAL THERAPY, ON DAY 5)
     Route: 037
  24. VINCRISTINE [Suspect]
     Active Substance: VINCRISTINE
     Indication: Epstein-Barr virus infection
     Dosage: 1.5 MILLIGRAM/SQ. METER (REGIMEN AA; ON DAY 1)
     Route: 042
  25. VINCRISTINE [Suspect]
     Active Substance: VINCRISTINE
     Indication: Haemophagocytic lymphohistiocytosis
     Dosage: 1.5 MILLIGRAM/SQ. METER (REGIMEN BB; ON DAY 1)
     Route: 042
  26. VINCRISTINE [Suspect]
     Active Substance: VINCRISTINE
     Dosage: 1.5 MILLIGRAM/SQ. METER (REGIMEN CC; ON DAY 1)
     Route: 042
  27. CYCLOPHOSPHAMIDE [Suspect]
     Active Substance: CYCLOPHOSPHAMIDE
     Indication: Epstein-Barr virus infection
     Dosage: 200 MILLIGRAM/SQ. METER (HAEMOPHAGOCYTIC LYMPHOHISTIOCYTOSIS)
     Route: 042
  28. CYCLOPHOSPHAMIDE [Suspect]
     Active Substance: CYCLOPHOSPHAMIDE
     Indication: Haemophagocytic lymphohistiocytosis
  29. LEUCOVORIN [Suspect]
     Active Substance: LEUCOVORIN
     Indication: Epstein-Barr virus infection
     Dosage: UNK (FOLINIC-ACID RESCUE BEGAN 36 HOURS AFTER INITIAL METHOTREXATE INFUSION)
     Route: 065
  30. LEUCOVORIN [Suspect]
     Active Substance: LEUCOVORIN
     Indication: Haemophagocytic lymphohistiocytosis

REACTIONS (1)
  - Drug ineffective [Fatal]
